FAERS Safety Report 8346411-3 (Version None)
Quarter: 2012Q2

REPORT INFORMATION
  Report Type: 
  Country: None (occurrence: None)
  Receive Date: 20120509
  Receipt Date: 20120430
  Transmission Date: 20120825
  Serious: Yes (Hospitalization, Other)
  Sender: FDA-Public Use
  Company Number: IN-SANOFI-AVENTIS-2012SA008610

PATIENT
  Age: 46 Year
  Sex: Male
  Weight: 70.2 kg

DRUGS (4)
  1. SHELCAL [Concomitant]
     Route: 048
  2. CABAZITAXEL [Suspect]
     Indication: PROSTATE CANCER METASTATIC
     Dosage: DOSING INFORMATION WAS NOT PROVIDED.
     Route: 041
     Dates: start: 20110914, end: 20110914
  3. CABAZITAXEL [Suspect]
     Dosage: TOTAL DAILY DOSE NOT PROVIDED
     Route: 041
     Dates: start: 20120117, end: 20120117
  4. PREDNISOLONE [Suspect]
     Route: 048
     Dates: start: 20110914

REACTIONS (2)
  - HYPOCALCAEMIA [None]
  - CYSTITIS RADIATION [None]
